FAERS Safety Report 14934058 (Version 1)
Quarter: 2018Q2

REPORT INFORMATION
  Report Type: Spontaneous
  Country: GB (occurrence: GB)
  Receive Date: 20180524
  Receipt Date: 20180524
  Transmission Date: 20180711
  Serious: Yes (Other)
  Sender: FDA-Public Use
  Company Number: GB-TEVA-2018-GB-897489

PATIENT
  Age: 29 Year
  Sex: Male

DRUGS (2)
  1. LEVOFLOXACIN TABLETS, 250 MG, 500 MG AND 750 MG [Suspect]
     Active Substance: LEVOFLOXACIN
     Indication: PROSTATITIS
     Dosage: PATIENT COMPLETED COURSE
     Route: 065
     Dates: start: 201704
  2. CIPROFLOXACIN. [Suspect]
     Active Substance: CIPROFLOXACIN
     Indication: PROSTATITIS
     Dosage: COURSE COMPLETED
     Route: 065
     Dates: start: 201704

REACTIONS (9)
  - Arrhythmia [Recovered/Resolved]
  - Osteoarthritis [Unknown]
  - Diarrhoea [Not Recovered/Not Resolved]
  - Peripheral coldness [Recovered/Resolved]
  - Gluten sensitivity [Unknown]
  - Tendon rupture [Unknown]
  - Hyperhidrosis [Unknown]
  - Headache [Unknown]
  - Hypoaesthesia [Recovered/Resolved]
